FAERS Safety Report 5766830-9 (Version None)
Quarter: 2008Q2

REPORT INFORMATION
  Report Type: 
  Country: None (occurrence: None)
  Receive Date: 20080610
  Receipt Date: 20080610
  Transmission Date: 20081010
  Serious: Yes (Other)
  Sender: FDA-Public Use
  Company Number: None

PATIENT
  Age: 48 Year
  Sex: Female
  Weight: 54.8852 kg

DRUGS (1)
  1. AVELOX [Suspect]
     Indication: SINUSITIS
     Dosage: 1 PILL 1 X DAY PO
     Route: 048
     Dates: start: 20080606, end: 20080607

REACTIONS (8)
  - ARTHRALGIA [None]
  - CHILLS [None]
  - DYSSTASIA [None]
  - GAIT DISTURBANCE [None]
  - HEADACHE [None]
  - ILL-DEFINED DISORDER [None]
  - INSOMNIA [None]
  - PAIN [None]
